FAERS Safety Report 4769119-X (Version None)
Quarter: 2005Q3

REPORT INFORMATION
  Report Type: 
  Country: None (occurrence: None)
  Receive Date: 20050912
  Receipt Date: 20050519
  Transmission Date: 20060218
  Serious: Yes (Hospitalization)
  Sender: FDA-Public Use
  Company Number: 2005-01112

PATIENT
  Age: 57 Year
  Sex: Male

DRUGS (1)
  1. VELCADE [Suspect]
     Indication: NON-HODGKIN'S LYMPHOMA
     Dosage: IV BOLUS
     Route: 040
     Dates: start: 20050501

REACTIONS (1)
  - HYPOTENSION [None]
